FAERS Safety Report 4375023-1 (Version None)
Quarter: 2004Q2

REPORT INFORMATION
  Report Type: 
  Country: None (occurrence: None)
  Receive Date: 20040604
  Receipt Date: 20040528
  Transmission Date: 20050107
  Serious: Yes (Hospitalization)
  Sender: FDA-Public Use
  Company Number: 2004-116521-NL

PATIENT
  Age: 76 Year
  Sex: Female

DRUGS (9)
  1. MIRTAZAPINE [Suspect]
     Indication: ANXIETY
     Dosage: 30 MG, ORAL
     Route: 048
     Dates: start: 20040226, end: 20040322
  2. MIRTAZAPINE [Suspect]
     Indication: DEPRESSION
     Dosage: 30 MG, ORAL
     Route: 048
     Dates: start: 20040226, end: 20040322
  3. CALCICHEW [Concomitant]
  4. DIAZEPAM [Concomitant]
  5. SIMVASTATIN [Concomitant]
  6. ASPIRIN [Concomitant]
  7. OLANZAPINE [Concomitant]
  8. VENLAFAXINE HCL [Concomitant]
  9. PANTOPRAZOLE SODIUM [Concomitant]

REACTIONS (5)
  - ANXIETY [None]
  - CONDITION AGGRAVATED [None]
  - DEPRESSION [None]
  - DRUG INEFFECTIVE [None]
  - PHARMACEUTICAL PRODUCT COMPLAINT [None]
